FAERS Safety Report 19437774 (Version 1)
Quarter: 2021Q2

REPORT INFORMATION
  Report Type: Spontaneous
  Country: US (occurrence: US)
  Receive Date: 20210619
  Receipt Date: 20210619
  Transmission Date: 20210717
  Serious: Yes (Other)
  Sender: FDA-Public Use
  Company Number: US-AUROBINDO-AUR-APL-2021-024903

PATIENT
  Age: 16 Year
  Sex: Male

DRUGS (1)
  1. IBUPROFEN. [Suspect]
     Active Substance: IBUPROFEN
     Indication: ARTHRALGIA
     Dosage: 1.2 GRAM, ONCE A DAY
     Route: 065

REACTIONS (7)
  - Jaundice [Unknown]
  - Pruritus [Recovered/Resolved]
  - Hepato-lenticular degeneration [Unknown]
  - Ocular icterus [Unknown]
  - Cholestasis [Unknown]
  - Liver injury [Unknown]
  - Chromaturia [Unknown]
